FAERS Safety Report 20013353 (Version 2)
Quarter: 2021Q4

REPORT INFORMATION
  Report Type: Spontaneous
  Country: CA (occurrence: CA)
  Receive Date: 20211029
  Receipt Date: 20211121
  Transmission Date: 20220303
  Serious: Yes (Death, Hospitalization)
  Sender: FDA-Public Use
  Company Number: CA-009507513-2110CAN007526

PATIENT
  Age: 52 Year
  Sex: Male

DRUGS (6)
  1. POSACONAZOLE [Suspect]
     Active Substance: POSACONAZOLE
     Indication: Fungal infection
     Dosage: UNK
     Route: 048
  2. AMPHOTERICIN B [Suspect]
     Active Substance: AMPHOTERICIN B
     Indication: Fungal infection
     Dosage: UNK
     Route: 065
  3. MICAFUNGIN SODIUM [Suspect]
     Active Substance: MICAFUNGIN SODIUM
     Indication: Fungal infection
     Dosage: UNK
     Route: 042
  4. MYCOPHENOLATE MOFETIL [Suspect]
     Active Substance: MYCOPHENOLATE MOFETIL
     Indication: Immunosuppression
     Dosage: 500 MILLIGRAM, Q12H
     Route: 065
  5. PREDNISONE [Suspect]
     Active Substance: PREDNISONE
     Indication: Immunosuppression
     Dosage: 7.5 MILLIGRAM, QD
     Route: 065
  6. TACROLIMUS [Suspect]
     Active Substance: TACROLIMUS
     Indication: Immunosuppression
     Dosage: 5.5 MILLIGRAM, QD
     Route: 065

REACTIONS (5)
  - Adrenal insufficiency [Fatal]
  - Fungal skin infection [Fatal]
  - Ileus [Fatal]
  - Pancreatitis [Fatal]
  - Pneumonia fungal [Fatal]
